FAERS Safety Report 9574782 (Version 1)
Quarter: 2013Q4

REPORT INFORMATION
  Report Type: Spontaneous
  Country: US (occurrence: US)
  Receive Date: 20131001
  Receipt Date: 20131001
  Transmission Date: 20140711
  Serious: No
  Sender: FDA-Public Use
  Company Number: US-BANPHARM-20120302

PATIENT
  Sex: Male

DRUGS (1)
  1. LOPERAMIDE HCL CAPSULES, 2 MG [Suspect]
     Indication: DIARRHOEA
     Dosage: 2 DF, QOD,
     Route: 048

REACTIONS (3)
  - Flatulence [Unknown]
  - Abnormal faeces [Unknown]
  - Product substitution issue [Unknown]
